FAERS Safety Report 8352037-8 (Version None)
Quarter: 2012Q2

REPORT INFORMATION
  Report Type: 
  Country: None (occurrence: None)
  Receive Date: 20120511
  Receipt Date: 20120501
  Transmission Date: 20120825
  Serious: Yes (Death, Life-Threatening, Hospitalization)
  Sender: FDA-Public Use
  Company Number: US-CELGENEUS-163-21880-12032290

PATIENT
  Sex: Female

DRUGS (12)
  1. REVLIMID [Suspect]
     Indication: ANGIOIMMUNOBLASTIC T-CELL LYMPHOMA
     Dosage: 2.5 MILLIGRAM
     Route: 048
     Dates: start: 20120216, end: 20120305
  2. ACYCLOVIR [Concomitant]
     Route: 065
  3. NYSTATIN [Concomitant]
     Route: 065
  4. MORPHINE [Concomitant]
     Route: 065
  5. ACETAMINOPHEN [Concomitant]
     Route: 065
  6. LEVOTHYROXINE SODIUM [Concomitant]
     Route: 065
  7. FUROSEMIDE [Concomitant]
     Route: 065
  8. ALBUTEROL [Concomitant]
     Route: 065
  9. OMEPRAZOLE [Concomitant]
     Route: 065
  10. REVLIMID [Suspect]
  11. METOPROLOL TARTRATE [Concomitant]
     Route: 065
  12. AMLODIPINE BESYLATE [Concomitant]
     Route: 065

REACTIONS (5)
  - ANGIOIMMUNOBLASTIC T-CELL LYMPHOMA [None]
  - APHTHOUS STOMATITIS [None]
  - RENAL FAILURE [None]
  - CARDIAC FAILURE [None]
  - IMMUNE SYSTEM DISORDER [None]
